FAERS Safety Report 7635824 (Version 2)
Quarter: 2013Q1

REPORT INFORMATION
  Report Type: Spontaneous
  Country: US (occurrence: US)
  Receive Date: 20101021
  Receipt Date: 20130227
  Transmission Date: 20140127
  Serious: No
  Sender: FDA-Public Use
  Company Number: 2009BI040124

PATIENT
  Age: 45 Year
  Sex: Female

DRUGS (1)
  1. TYSABRI [Suspect]
     Indication: MULTIPLE SCLEROSIS
     Route: 042
     Dates: start: 20071008

REACTIONS (4)
  - Contusion [Recovered/Resolved]
  - Poor venous access [Recovered/Resolved]
  - Burning sensation [Recovered/Resolved]
  - Fatigue [Recovered/Resolved]
